FAERS Safety Report 21398849 (Version 1)
Quarter: 2022Q4

REPORT INFORMATION
  Report Type: Report from Study
  Country: US (occurrence: US)
  Receive Date: 20221001
  Receipt Date: 20221001
  Transmission Date: 20230113
  Serious: Yes (Death)
  Sender: FDA-Public Use
  Company Number: US-ABBVIE-4134191

PATIENT
  Age: 80 Year
  Sex: Male

DRUGS (1)
  1. CREON [Suspect]
     Active Substance: PANCRELIPASE AMYLASE\PANCRELIPASE LIPASE\PANCRELIPASE PROTEASE
     Indication: Pancreatic failure
     Dosage: 2 CAPSULE EACH MEAL AND 1 WITH SNACKS
     Route: 048
     Dates: start: 202006, end: 20220917

REACTIONS (1)
  - Death [Fatal]

NARRATIVE: CASE EVENT DATE: 20220918
